FAERS Safety Report 11638944 (Version 1)
Quarter: 2015Q4

REPORT INFORMATION
  Report Type: Spontaneous
  Country: IT (occurrence: IT)
  Receive Date: 20151018
  Receipt Date: 20151018
  Transmission Date: 20160304
  Serious: Yes (Hospitalization)
  Sender: FDA-Public Use
  Company Number: IT-TEVA-600857ACC

PATIENT
  Age: 68 Year
  Sex: Female
  Weight: 65 kg

DRUGS (7)
  1. FLUOROURACIL. [Suspect]
     Active Substance: FLUOROURACIL
     Indication: ADENOCARCINOMA OF COLON
     Dosage: 400 MG/M2 CYCLICAL
     Route: 040
     Dates: start: 20150909
  2. ZOFRAN - 8 MG/4 ML SOLUZIONE INIETTABILE [Concomitant]
     Indication: PRODUCT USED FOR UNKNOWN INDICATION
     Dosage: 8 MG
     Route: 042
  3. VECTIBIX [Suspect]
     Active Substance: PANITUMUMAB
     Indication: ADENOCARCINOMA OF COLON
     Dosage: 6 MG/KG CYCLICAL
     Route: 042
     Dates: start: 20150909
  4. SOLDESAM - 4 MG/ML SOLUZIONE INIETTABILE [Concomitant]
     Active Substance: DEXAMETHASONE
     Indication: PRODUCT USED FOR UNKNOWN INDICATION
     Dosage: 8 MG
     Route: 042
  5. FLUOROURACIL. [Suspect]
     Active Substance: FLUOROURACIL
     Indication: ADENOCARCINOMA OF COLON
     Dosage: 600 MG/M2 CYCLICAL
     Route: 041
     Dates: start: 20150909
  6. OXALIPLATINO ACCORD HEALTHCARE [Concomitant]
     Active Substance: OXALIPLATIN
     Indication: ADENOCARCINOMA OF COLON
     Dosage: 85 MG/M2
     Route: 042
     Dates: start: 20150909
  7. CALCIO LEVOFOLINATO TEVA [Concomitant]
     Active Substance: LEUCOVORIN CALCIUM
     Indication: ADENOCARCINOMA OF COLON
     Dosage: 100 MG/M2
     Route: 042
     Dates: start: 20150909

REACTIONS (1)
  - Acute myocardial infarction [Recovering/Resolving]

NARRATIVE: CASE EVENT DATE: 20150911
